FAERS Safety Report 23841902 (Version 1)
Quarter: 2024Q2

REPORT INFORMATION
  Report Type: Spontaneous
  Country: BR (occurrence: None)
  Receive Date: 20240510
  Receipt Date: 20240510
  Transmission Date: 20240716
  Serious: Yes (Life-Threatening, Other)
  Sender: FDA-Public Use
  Company Number: 2024A109947

PATIENT
  Sex: Male
  Weight: 19 kg

DRUGS (1)
  1. SYMBICORT [Suspect]
     Active Substance: BUDESONIDE\FORMOTEROL FUMARATE DIHYDRATE
     Indication: Asthma
     Dosage: 1, UG/INHAL,EVERY 12 HOURS
     Route: 055
     Dates: start: 20220610, end: 20240423

REACTIONS (2)
  - Asthmatic crisis [Unknown]
  - Off label use [Recovered/Resolved]
